FAERS Safety Report 6645595-2 (Version None)
Quarter: 2010Q1

REPORT INFORMATION
  Report Type: 
  Country: None (occurrence: None)
  Receive Date: 20100323
  Receipt Date: 20100317
  Transmission Date: 20100710
  Serious: No
  Sender: FDA-Public Use
  Company Number: US-RANBAXY-2010US-31403

PATIENT

DRUGS (1)
  1. VALACYCLOVIR HYDROCHLORIDE [Suspect]
     Indication: HERPES ZOSTER
     Dosage: 1 G, TID
     Route: 048
     Dates: start: 20100211, end: 20100216

REACTIONS (5)
  - DECREASED APPETITE [None]
  - DYSGEUSIA [None]
  - NIGHTMARE [None]
  - QUALITY OF LIFE DECREASED [None]
  - VISION BLURRED [None]
